FAERS Safety Report 25000657 (Version 1)
Quarter: 2025Q1

REPORT INFORMATION
  Report Type: Spontaneous
  Country: DE (occurrence: DE)
  Receive Date: 20250222
  Receipt Date: 20250222
  Transmission Date: 20250408
  Serious: Yes (Other)
  Sender: AMGEN
  Company Number: DE-AMGEN-DEUSP2025030461

PATIENT
  Age: 87 Year
  Sex: Female

DRUGS (1)
  1. PROLIA [Suspect]
     Active Substance: DENOSUMAB
     Indication: Osteopenia
     Route: 065
     Dates: start: 20220822

REACTIONS (6)
  - Knee arthroplasty [Unknown]
  - Medical device site inflammation [Unknown]
  - Tooth extraction [Unknown]
  - Off label use [Unknown]
  - Dental prosthesis placement [Unknown]
  - Device failure [Unknown]

NARRATIVE: CASE EVENT DATE: 20220822
